FAERS Safety Report 14598276 (Version 6)
Quarter: 2018Q3

REPORT INFORMATION
  Report Type: Spontaneous
  Country: US (occurrence: US)
  Receive Date: 20180305
  Receipt Date: 20180725
  Transmission Date: 20181010
  Serious: Yes (Hospitalization)
  Sender: FDA-Public Use
  Company Number: US-JNJFOC-20180133000

PATIENT
  Sex: Male
  Weight: 48.99 kg

DRUGS (5)
  1. FENTANYL. [Suspect]
     Active Substance: FENTANYL
     Indication: PAIN
     Route: 062
     Dates: start: 2016
  2. FENTANYL. [Suspect]
     Active Substance: FENTANYL
     Indication: PAIN
     Route: 062
  3. FENTANYL. [Suspect]
     Active Substance: FENTANYL
     Indication: PAIN
     Route: 062
     Dates: start: 2016
  4. DURAGESIC [Suspect]
     Active Substance: FENTANYL
     Indication: PRODUCT USED FOR UNKNOWN INDICATION
     Route: 065
     Dates: start: 2015
  5. FENTANYL. [Suspect]
     Active Substance: FENTANYL
     Indication: PAIN
     Route: 062

REACTIONS (12)
  - Weight decreased [Not Recovered/Not Resolved]
  - Hospitalisation [Unknown]
  - Inappropriate schedule of drug administration [Unknown]
  - Nausea [Not Recovered/Not Resolved]
  - Neoplasm progression [Unknown]
  - Product quality issue [Unknown]
  - Rash [Not Recovered/Not Resolved]
  - Hypersensitivity [Not Recovered/Not Resolved]
  - Withdrawal syndrome [Not Recovered/Not Resolved]
  - Adverse event [Not Recovered/Not Resolved]
  - Poor quality sleep [Not Recovered/Not Resolved]
  - Pain [Not Recovered/Not Resolved]

NARRATIVE: CASE EVENT DATE: 2015
